FAERS Safety Report 10264965 (Version 1)
Quarter: 2014Q2

REPORT INFORMATION
  Report Type: Spontaneous
  Country: US (occurrence: US)
  Receive Date: 20140627
  Receipt Date: 20140627
  Transmission Date: 20141212
  Serious: No
  Sender: FDA-Public Use
  Company Number: US-PFIZER INC-2014172516

PATIENT
  Age: 64 Year
  Sex: Female

DRUGS (7)
  1. SULFASALAZINE [Suspect]
     Indication: RHEUMATOID ARTHRITIS
     Dosage: UNK
     Dates: start: 2004, end: 201311
  2. FLOVENT HFA [Concomitant]
     Dosage: 220 MCG/ACT INHALE TWO PUFFS TWO TIMES DAILY AS NEEDED
     Dates: start: 20110322
  3. HYDROCHLOORTHIAZIDE [Concomitant]
     Dosage: 25 MG, 1X/DAY
     Route: 048
     Dates: start: 20101228
  4. DOXEPIN [Concomitant]
     Dosage: 25 MG, 1X/DAY
     Route: 048
     Dates: start: 20101208
  5. SEREVENT [Concomitant]
     Dosage: 50 UG, 2X/DAY ONE INHALATION
     Dates: start: 20100611
  6. LISINOPRIL [Concomitant]
     Dosage: 10 MG, 1X/DAY PRN
     Route: 048
     Dates: start: 20091217
  7. CALCIUM CARBONATE AND VITAMIN D [Concomitant]
     Dosage: 600-400MG-UNIT 2X/DAY
     Route: 048
     Dates: start: 20080117

REACTIONS (1)
  - Rash [Unknown]
